FAERS Safety Report 12299474 (Version 4)
Quarter: 2018Q1

REPORT INFORMATION
  Report Type: Spontaneous
  Country: US (occurrence: US)
  Receive Date: 20160425
  Receipt Date: 20180123
  Transmission Date: 20180508
  Serious: No
  Sender: FDA-Public Use
  Company Number: US-PFIZER INC-2016183899

PATIENT
  Sex: Male

DRUGS (1)
  1. VIAGRA [Suspect]
     Active Substance: SILDENAFIL CITRATE
     Dosage: 50 MG, UNK (EVERY 48 HOURS)

REACTIONS (6)
  - Intentional product use issue [Unknown]
  - Nervousness [Unknown]
  - Erythema [Unknown]
  - Drug effect delayed [Unknown]
  - Drug ineffective [Unknown]
  - Suspected counterfeit product [Unknown]
